FAERS Safety Report 7956995-2 (Version None)
Quarter: 2011Q4

REPORT INFORMATION
  Report Type: 
  Country: None (occurrence: None)
  Receive Date: 20111205
  Receipt Date: 20111205
  Transmission Date: 20120403
  Serious: Yes (Other)
  Sender: FDA-Public Use
  Company Number: None

PATIENT
  Age: 57 Year
  Sex: Female
  Weight: 58.059 kg

DRUGS (1)
  1. CITALOPRAM HYDROBROMIDE [Suspect]
     Indication: ANXIETY
     Dosage: 20 MG TABS  -1/2 TAB 10MG-
     Route: 048
     Dates: start: 20110925, end: 20111126

REACTIONS (7)
  - MYALGIA [None]
  - HEADACHE [None]
  - MUSCLE SPASMS [None]
  - DYSSTASIA [None]
  - PAIN IN EXTREMITY [None]
  - URINARY TRACT INFECTION [None]
  - SUDDEN ONSET OF SLEEP [None]
